FAERS Safety Report 6823601-X (Version None)
Quarter: 2010Q3

REPORT INFORMATION
  Report Type: 
  Country: None (occurrence: None)
  Receive Date: 20100708
  Receipt Date: 20060814
  Transmission Date: 20110219
  Serious: No
  Sender: FDA-Public Use
  Company Number: US-PFIZER INC-2006099232

PATIENT
  Sex: Female
  Weight: 79.38 kg

DRUGS (8)
  1. CHANTIX [Suspect]
     Indication: EX-TOBACCO USER
     Dates: start: 20060810
  2. ADVAIR DISKUS 100/50 [Concomitant]
  3. ALBUTEROL [Concomitant]
  4. IPRATROPIUM [Concomitant]
  5. PREVACID [Concomitant]
  6. PREDNISONE [Concomitant]
  7. LEVAQUIN [Concomitant]
     Dates: start: 20060101
  8. SINGULAIR [Concomitant]

REACTIONS (2)
  - MALAISE [None]
  - SOMNOLENCE [None]
